FAERS Safety Report 8453014-9 (Version None)
Quarter: 2012Q2

REPORT INFORMATION
  Report Type: 
  Country: None (occurrence: None)
  Receive Date: 20120620
  Receipt Date: 20120517
  Transmission Date: 20120825
  Serious: No
  Sender: FDA-Public Use
  Company Number: US-VERTEX PHARMACEUTICALS INC.-AE-2012-006478

PATIENT
  Sex: Male
  Weight: 88.53 kg

DRUGS (7)
  1. DIPHENHYDRAMINE HCL [Concomitant]
     Indication: HYPERSENSITIVITY
     Route: 048
  2. PRILOSEC [Concomitant]
  3. INCIVEK [Suspect]
     Indication: HEPATITIS C
     Route: 048
     Dates: start: 20120413
  4. RIBAVIRIN [Concomitant]
     Indication: HEPATITIS C
     Route: 048
     Dates: start: 20120413
  5. AMBIEN [Concomitant]
  6. XANAX [Concomitant]
     Indication: ANXIETY
     Route: 048
  7. PEGASYS [Concomitant]
     Indication: HEPATITIS C
     Route: 058
     Dates: start: 20120413

REACTIONS (2)
  - TOOTHACHE [None]
  - PLATELET COUNT DECREASED [None]
